FAERS Safety Report 16567454 (Version 4)
Quarter: 2019Q4

REPORT INFORMATION
  Report Type: Spontaneous
  Country: NL (occurrence: NL)
  Receive Date: 20190712
  Receipt Date: 20191014
  Transmission Date: 20200122
  Serious: Yes (Hospitalization, Other)
  Sender: FDA-Public Use
  Company Number: NL-MYLANLABS-2019M1062610

PATIENT
  Age: 78 Year
  Sex: Male

DRUGS (1)
  1. SOTALOL. [Suspect]
     Active Substance: SOTALOL
     Indication: ARRHYTHMIA
     Dosage: UNK, BID
     Dates: start: 20180611

REACTIONS (9)
  - Therapy non-responder [Unknown]
  - Urinary tract infection [Recovering/Resolving]
  - Tachycardia induced cardiomyopathy [Recovering/Resolving]
  - Heart rate increased [Recovering/Resolving]
  - Renal impairment [Recovering/Resolving]
  - Cardiac arrest [Recovered/Resolved]
  - Torsade de pointes [Recovered/Resolved]
  - Malaise [Unknown]
  - Atrial fibrillation [Recovering/Resolving]

NARRATIVE: CASE EVENT DATE: 20180611
